FAERS Safety Report 8508598-9 (Version None)
Quarter: 2012Q3

REPORT INFORMATION
  Report Type: 
  Country: None (occurrence: None)
  Receive Date: 20120713
  Receipt Date: 20120710
  Transmission Date: 20120928
  Serious: No
  Sender: FDA-Public Use
  Company Number: US-PFIZER INC-2012166399

PATIENT
  Sex: Female

DRUGS (6)
  1. MORPHINE SULFATE [Suspect]
     Indication: FALL
     Dosage: UNK
  2. MORPHINE SULFATE [Suspect]
     Indication: BACK PAIN
  3. LYRICA [Suspect]
     Indication: BACK PAIN
  4. LYRICA [Suspect]
     Indication: FALL
     Dosage: UNK
  5. VICODIN [Suspect]
     Indication: FALL
     Dosage: UNK
  6. VICODIN [Suspect]
     Indication: BACK PAIN

REACTIONS (2)
  - PAIN [None]
  - DIZZINESS [None]
